FAERS Safety Report 8600550-8 (Version None)
Quarter: 2012Q3

REPORT INFORMATION
  Report Type: 
  Country: None (occurrence: None)
  Receive Date: 20120803
  Receipt Date: 20120719
  Transmission Date: 20120928
  Serious: Yes (Life-Threatening)
  Sender: FDA-Public Use
  Company Number: TPA2012A05067

PATIENT
  Sex: Female

DRUGS (1)
  1. ADENURIC (FEBUXOSTAT) [Suspect]
     Indication: GOUT
     Dosage: 80 MG DIE SINGLE DOSE

REACTIONS (2)
  - HYPOTENSION [None]
  - DERMATITIS EXFOLIATIVE [None]
